FAERS Safety Report 5096701-5 (Version None)
Quarter: 2006Q3

REPORT INFORMATION
  Report Type: 
  Country: None (occurrence: None)
  Receive Date: 20060831
  Receipt Date: 20060815
  Transmission Date: 20061208
  Serious: No
  Sender: FDA-Public Use
  Company Number: E3810-00151-SPO-DE

PATIENT
  Sex: Female
  Weight: 50 kg

DRUGS (1)
  1. RABEPRAZOLE SODIUM [Suspect]
     Dosage: SEE IMAGE
     Route: 048
     Dates: start: 20060501

REACTIONS (5)
  - APTYALISM [None]
  - CONDITION AGGRAVATED [None]
  - COUGH [None]
  - DRY MOUTH [None]
  - GASTROOESOPHAGEAL REFLUX DISEASE [None]
